FAERS Safety Report 6294734-4 (Version None)
Quarter: 2009Q3

REPORT INFORMATION
  Report Type: 
  Country: None (occurrence: None)
  Receive Date: 20090803
  Receipt Date: 20090730
  Transmission Date: 20100115
  Serious: Yes (Death)
  Sender: FDA-Public Use
  Company Number: JP-ASTRAZENECA-2009SE06316

PATIENT
  Age: 71 Year
  Sex: Male

DRUGS (1)
  1. XYLOCAINE [Suspect]
     Dosage: DOSE UNKNOWN (10 ML X 1 AMPULE WAS USED)
     Route: 065
     Dates: start: 20060101, end: 20060101

REACTIONS (1)
  - ANAPHYLACTOID SHOCK [None]
